FAERS Safety Report 5417558-6 (Version None)
Quarter: 2007Q3

REPORT INFORMATION
  Report Type: 
  Country: None (occurrence: None)
  Receive Date: 20070718
  Receipt Date: 20070507
  Transmission Date: 20080115
  Serious: Yes (Other)
  Sender: FDA-Public Use
  Company Number: 2007036638

PATIENT
  Age: 79 Year
  Sex: Male
  Weight: 72.72 kg

DRUGS (9)
  1. CELEBREX [Suspect]
     Indication: HEADACHE
     Dosage: 200 MG
     Dates: start: 20070411, end: 20070506
  2. TRUSOPT [Concomitant]
  3. XALATAN [Concomitant]
  4. LUTEIN (XANTHOPHYLL) [Concomitant]
  5. ALL OTHER THERAPEUTIC PRODUCTS (ALL OTHER THERAPEUTIC PRODUCTS) [Concomitant]
  6. PAXIL [Concomitant]
  7. MICARDIS [Concomitant]
  8. LOVASTATIN [Concomitant]
  9. PLAVIX [Concomitant]

REACTIONS (1)
  - VISION BLURRED [None]
